FAERS Safety Report 5968384-0 (Version None)
Quarter: 2008Q4

REPORT INFORMATION
  Report Type: 
  Country: None (occurrence: None)
  Receive Date: 20081119
  Receipt Date: 20080826
  Transmission Date: 20090506
  Serious: No
  Sender: FDA-Public Use
  Company Number: WAES 0806USA02892

PATIENT
  Age: 76 Year
  Sex: Female
  Weight: 73.9363 kg

DRUGS (3)
  1. JANUVIA [Suspect]
     Indication: TYPE 2 DIABETES MELLITUS
     Dosage: 100 MG/DAILY/PO
     Route: 048
     Dates: start: 20080509, end: 20080626
  2. FORTICAL [Concomitant]
  3. SERTRALINE HYDROCHLORIDE [Concomitant]

REACTIONS (2)
  - ALOPECIA [None]
  - DIABETES MELLITUS INADEQUATE CONTROL [None]
